FAERS Safety Report 5699281-6 (Version None)
Quarter: 2008Q2

REPORT INFORMATION
  Report Type: 
  Country: None (occurrence: None)
  Receive Date: 20080404
  Receipt Date: 20080318
  Transmission Date: 20081010
  Serious: Yes (Hospitalization)
  Sender: FDA-Public Use
  Company Number: 2008-00246FE

PATIENT
  Age: 41 Year
  Sex: Female

DRUGS (2)
  1. GONADOTROPIN () () [Suspect]
     Indication: INFERTILITY
     Dosage: 375 IU
  2. HUMAN CHORIONIC GONADOTROPIN () (CHORIONIC GONADOTROPHIN) [Suspect]
     Indication: OVARIAN HYPERSTIMULATION SYNDROME
     Dosage: 5000 IU

REACTIONS (5)
  - CAESAREAN SECTION [None]
  - OVARIAN TORSION [None]
  - POLYCYSTIC OVARIES [None]
  - PREMATURE RUPTURE OF MEMBRANES [None]
  - TWIN PREGNANCY [None]
